FAERS Safety Report 9016554 (Version 2)
Quarter: 2013Q1

REPORT INFORMATION
  Report Type: Spontaneous
  Country: US (occurrence: US)
  Receive Date: 20130117
  Receipt Date: 20130125
  Transmission Date: 20140127
  Serious: Yes (Death, Other)
  Sender: FDA-Public Use
  Company Number: US-009507513-1301USA006039

PATIENT
  Age: 68 None
  Sex: Male

DRUGS (5)
  1. EMEND [Suspect]
     Indication: PROPHYLAXIS OF NAUSEA AND VOMITING
     Dosage: UNK
     Dates: start: 20121205
  2. ANTINEOPLASTIC (UNSPECIFIED) [Concomitant]
     Indication: SMALL CELL LUNG CANCER
     Dosage: UNK
     Dates: start: 20121205
  3. CARBOPLATIN [Concomitant]
  4. ZOFRAN [Concomitant]
     Dosage: 8 MG, UNK
  5. ETOPOSIDE [Concomitant]

REACTIONS (2)
  - Small cell lung cancer [Fatal]
  - Sepsis [Unknown]
